FAERS Safety Report 4787013-5 (Version None)
Quarter: 2005Q3

REPORT INFORMATION
  Report Type: 
  Country: None (occurrence: None)
  Receive Date: 20050930
  Receipt Date: 20050210
  Transmission Date: 20060218
  Serious: Yes (Hospitalization)
  Sender: FDA-Public Use
  Company Number: 2005FR-00290

PATIENT
  Age: 65 Year
  Sex: Male

DRUGS (6)
  1. ASPIRIN [Suspect]
     Indication: PROPHYLAXIS
     Dosage: 75 MG, ORAL
     Route: 048
     Dates: end: 20021001
  2. BENDROFLUAXIDE [Concomitant]
  3. DOXAZOCIN XL [Concomitant]
  4. RAMIPRIL [Concomitant]
  5. FELODEPINE [Concomitant]
  6. TAMAZEPAM [Concomitant]

REACTIONS (4)
  - DUODENITIS [None]
  - GASTRITIS EROSIVE [None]
  - HAEMATEMESIS [None]
  - MELAENA [None]
